FAERS Safety Report 9264034 (Version 1)
Quarter: 2013Q2

REPORT INFORMATION
  Report Type: Spontaneous
  Country: ES (occurrence: ES)
  Receive Date: 20130430
  Receipt Date: 20130430
  Transmission Date: 20140414
  Serious: Yes (Other)
  Sender: FDA-Public Use
  Company Number: ES-WATSON-2013-07128

PATIENT
  Age: 3 Year
  Sex: Female

DRUGS (4)
  1. PREDNISONE (UNKNOWN) [Suspect]
     Indication: TAKAYASU^S ARTERITIS
     Dosage: 1 MG/KG, DAILY
     Route: 065
  2. PREDNISONE (UNKNOWN) [Suspect]
     Dosage: 2 MG/KG, DAILY
     Route: 065
  3. METHOTREXATE [Concomitant]
     Indication: TAKAYASU^S ARTERITIS
     Dosage: 15 MG/M2, 1/WEEK
     Route: 065
  4. ACETYLSALICYLIC ACID [Concomitant]
     Indication: ANTIPLATELET THERAPY
     Dosage: UNK
     Route: 065

REACTIONS (4)
  - Cushingoid [Unknown]
  - Hypertension [Recovered/Resolved]
  - Growth retardation [Recovering/Resolving]
  - Osteopenia [Recovered/Resolved]
